FAERS Safety Report 4968096-6 (Version None)
Quarter: 2006Q2

REPORT INFORMATION
  Report Type: 
  Country: None (occurrence: None)
  Receive Date: 20060405
  Receipt Date: 20060328
  Transmission Date: 20061013
  Serious: Yes (Hospitalization)
  Sender: FDA-Public Use
  Company Number: TCI2005A04982

PATIENT
  Age: 84 Year
  Sex: Female

DRUGS (6)
  1. ACTOS [Suspect]
     Indication: DIABETES MELLITUS NON-INSULIN-DEPENDENT
     Route: 048
     Dates: end: 20051201
  2. URSO 250 [Concomitant]
  3. ASPIRIN [Concomitant]
  4. ALFACALCIDOL [Concomitant]
  5. NILVADIPINE [Concomitant]
  6. BONALON (ALENDRONIC ACID) [Concomitant]

REACTIONS (9)
  - ATRIAL FIBRILLATION [None]
  - CARDIOMEGALY [None]
  - DILATATION ATRIAL [None]
  - DYSPNOEA EXERTIONAL [None]
  - GASTROINTESTINAL CARCINOMA [None]
  - MITRAL VALVE INCOMPETENCE [None]
  - OEDEMA PERIPHERAL [None]
  - PERICARDIAL EFFUSION [None]
  - RESPIRATORY DISORDER [None]
